FAERS Safety Report 21520958 (Version 2)
Quarter: 2022Q4

REPORT INFORMATION
  Report Type: Report from Study
  Country: GB (occurrence: GB)
  Receive Date: 20221028
  Receipt Date: 20221201
  Transmission Date: 20230113
  Serious: Yes (Hospitalization, Disabling)
  Sender: FDA-Public Use
  Company Number: GB-PFIZER INC-PV202200084861

PATIENT
  Age: 79 Year
  Sex: Male
  Weight: 86.9 kg

DRUGS (6)
  1. CRIZOTINIB [Suspect]
     Active Substance: CRIZOTINIB
     Indication: Lung cancer metastatic
     Dosage: CURRENT CYCLE: 78
     Route: 048
     Dates: start: 20180216, end: 20220915
  2. QUININE SULFATE [Concomitant]
     Active Substance: QUININE SULFATE
     Indication: Muscle spasms
     Dosage: 200 MG, DAILY
     Route: 048
     Dates: start: 20191119
  3. ZOPICLONE [Concomitant]
     Active Substance: ZOPICLONE
     Indication: Insomnia
     Dosage: 3.7 MG, AS NEEDED
     Route: 048
     Dates: start: 20190219, end: 20220917
  4. CALCIUM CARBONATE\CHOLECALCIFEROL [Concomitant]
     Active Substance: CALCIUM CARBONATE\CHOLECALCIFEROL
     Indication: Blood calcium decreased
     Dosage: 750 MG, 2X/DAY
     Route: 048
     Dates: start: 20180410
  5. MOVICOL [Concomitant]
     Active Substance: POLYETHYLENE GLYCOL 3350\POTASSIUM CHLORIDE\SODIUM BICARBONATE\SODIUM CHLORIDE
     Indication: Constipation
     Dosage: 13.8 G, AS NEEDED
     Route: 048
     Dates: start: 20151230
  6. LANSOPRAZOLE [Concomitant]
     Active Substance: LANSOPRAZOLE
     Indication: Gastrooesophageal reflux disease
     Dosage: 30 MG, 2X/DAY
     Route: 048
     Dates: start: 20110315

REACTIONS (1)
  - Cerebrovascular accident [Unknown]

NARRATIVE: CASE EVENT DATE: 20220916
